FAERS Safety Report 24185508 (Version 1)
Quarter: 2024Q3

REPORT INFORMATION
  Report Type: Spontaneous
  Country: US (occurrence: US)
  Receive Date: 20240807
  Receipt Date: 20240807
  Transmission Date: 20241016
  Serious: No
  Sender: BAYER
  Company Number: US-BAYER-2024A111297

PATIENT
  Age: 69 Year
  Sex: Female

DRUGS (2)
  1. CLIMARA [Suspect]
     Active Substance: ESTRADIOL
     Indication: Hot flush
     Dosage: UNK
     Route: 062
     Dates: start: 2021
  2. CLIMARA [Suspect]
     Active Substance: ESTRADIOL
     Indication: Burning sensation

REACTIONS (3)
  - Feeling hot [None]
  - Drug ineffective [None]
  - Device defective [None]
